FAERS Safety Report 14766843 (Version 1)
Quarter: 2018Q2

REPORT INFORMATION
  Report Type: Spontaneous
  Country: US (occurrence: US)
  Receive Date: 20180417
  Receipt Date: 20180417
  Transmission Date: 20180711
  Serious: No
  Sender: FDA-Public Use
  Company Number: US-009507513-1803USA012559

PATIENT
  Age: 22 Year
  Sex: Female
  Weight: 69.84 kg

DRUGS (1)
  1. NEXPLANON [Suspect]
     Active Substance: ETONOGESTREL
     Indication: CONTRACEPTION
     Dosage: 1 DF, UNK, 3 YEAR IMPLANT, LEFT ARM
     Route: 059
     Dates: start: 20150922

REACTIONS (6)
  - Nausea [Unknown]
  - Headache [Unknown]
  - Vomiting [Unknown]
  - Pain in extremity [Unknown]
  - Anaemia [Unknown]
  - Hypoaesthesia [Unknown]

NARRATIVE: CASE EVENT DATE: 2016
